FAERS Safety Report 13318399 (Version 1)
Quarter: 2017Q1

REPORT INFORMATION
  Report Type: Spontaneous
  Country: US (occurrence: US)
  Receive Date: 20170309
  Receipt Date: 20170309
  Transmission Date: 20170428
  Serious: No
  Sender: FDA-Public Use
  Company Number: None

PATIENT
  Age: 13 Year
  Sex: Male

DRUGS (1)
  1. AFINITOR [Suspect]
     Active Substance: EVEROLIMUS

REACTIONS (8)
  - Insomnia [None]
  - Fatigue [None]
  - Salivary hypersecretion [None]
  - Pyrexia [None]
  - Decreased appetite [None]
  - Irritability [None]
  - Constipation [None]
  - Foaming at mouth [None]

NARRATIVE: CASE EVENT DATE: 20170309
